FAERS Safety Report 12272311 (Version 1)
Quarter: 2016Q2

REPORT INFORMATION
  Report Type: Spontaneous
  Country: US (occurrence: US)
  Receive Date: 20160415
  Receipt Date: 20160415
  Transmission Date: 20160815
  Serious: Yes (Hospitalization)
  Sender: FDA-Public Use
  Company Number: GXBR2016US001224

PATIENT
  Sex: Female

DRUGS (1)
  1. ENOXAPARIN SODIUM. [Suspect]
     Active Substance: ENOXAPARIN SODIUM
     Indication: EMBOLISM
     Dosage: UNK DF, UNK
     Route: 065
     Dates: start: 20160223

REACTIONS (6)
  - Cholecystitis infective [Unknown]
  - Dizziness [Unknown]
  - Decreased appetite [Unknown]
  - Blood pressure abnormal [Unknown]
  - Gingival bleeding [Unknown]
  - Pain [Unknown]

NARRATIVE: CASE EVENT DATE: 20160229
